FAERS Safety Report 8236605-X (Version None)
Quarter: 2012Q1

REPORT INFORMATION
  Report Type: 
  Country: None (occurrence: None)
  Receive Date: 20120326
  Receipt Date: 20120326
  Transmission Date: 20120608
  Serious: Yes (Other)
  Sender: FDA-Public Use
  Company Number: None

PATIENT
  Age: 10 Year
  Sex: Male
  Weight: 34.0198 kg

DRUGS (1)
  1. SINGULAIR [Suspect]
     Indication: HYPERSENSITIVITY
     Dosage: 5MG ONCE PER DAY ORAL CHEWABLE
     Route: 048
     Dates: start: 20111201, end: 20120201

REACTIONS (7)
  - MENTAL DISORDER [None]
  - TEARFULNESS [None]
  - LETHARGY [None]
  - SOCIAL AVOIDANT BEHAVIOUR [None]
  - HYPERSOMNIA [None]
  - CRYING [None]
  - DECREASED ACTIVITY [None]
